FAERS Safety Report 4280537-9 (Version None)
Quarter: 2004Q1

REPORT INFORMATION
  Report Type: 
  Country: None (occurrence: None)
  Receive Date: 20040127
  Receipt Date: 20040114
  Transmission Date: 20041129
  Serious: Yes (Hospitalization)
  Sender: FDA-Public Use
  Company Number: USA-2003-0011087

PATIENT
  Age: 55 Year
  Sex: Female

DRUGS (8)
  1. CEFDITOREN PIVOXIL (SIMILAR TO NDA 21-222) (CEFDITOREN PIVOXIL) [Suspect]
     Indication: NASOPHARYNGITIS
     Dosage: 300 MG, DAILY, ORAL
     Route: 048
     Dates: start: 20031020, end: 20031026
  2. CEFDITOREN PIVOXIL (SIMILAR TO NDA 21-222) (CEFDITOREN PIVOXIL) [Suspect]
     Indication: SINUSITIS
     Dosage: 300 MG, DAILY, ORAL
     Route: 048
     Dates: start: 20031020, end: 20031026
  3. ISALON (ALDIOXA) [Concomitant]
  4. BISOLVON (BROMHEXINE HYDROCHLORIDE) [Concomitant]
  5. SELBEX (TEPRENONE) [Concomitant]
  6. FOSMICIN S (FOSFOMYCIN SODIUM) [Concomitant]
  7. PONTAL (MEFENAMIC ACID) [Concomitant]
  8. DASEN (SERRAPEPTASE) [Concomitant]

REACTIONS (5)
  - ALANINE AMINOTRANSFERASE INCREASED [None]
  - ASPARTATE AMINOTRANSFERASE INCREASED [None]
  - BLOOD LACTATE DEHYDROGENASE INCREASED [None]
  - LOSS OF CONSCIOUSNESS [None]
  - RASH [None]
